FAERS Safety Report 10733119 (Version 3)
Quarter: 2022Q3

REPORT INFORMATION
  Report Type: Report from Study
  Country: US (occurrence: US)
  Receive Date: 20150123
  Receipt Date: 20220722
  Transmission Date: 20221027
  Serious: Yes (Congenital Anomaly)
  Sender: FDA-Public Use
  Company Number: US-JNJFOC-20150113336

PATIENT

DRUGS (4)
  1. STELARA [Suspect]
     Active Substance: USTEKINUMAB
     Indication: Psoriasis
     Dosage: 1 SHOT PER DAY, MOTHER^S DOSING
     Route: 064
     Dates: start: 20110101, end: 20131203
  2. VITAMINS [Concomitant]
     Active Substance: VITAMINS
     Dosage: 1 PILL
     Route: 048
     Dates: start: 20131208, end: 20140306
  3. VITAMIN B12 [Concomitant]
     Active Substance: CYANOCOBALAMIN
     Route: 048
     Dates: start: 20131208, end: 20140306
  4. VITAMIN D [Concomitant]
     Active Substance: VITAMIN D NOS
     Route: 048
     Dates: start: 20131208, end: 20140306

REACTIONS (3)
  - Exomphalos [Unknown]
  - Congenital musculoskeletal disorder of spine [Unknown]
  - Foetal exposure during pregnancy [Recovered/Resolved]
